FAERS Safety Report 23366987 (Version 1)
Quarter: 2024Q1

REPORT INFORMATION
  Report Type: Spontaneous
  Country: CR (occurrence: None)
  Receive Date: 20240104
  Receipt Date: 20240104
  Transmission Date: 20240409
  Serious: Yes (Other)
  Sender: FDA-Public Use
  Company Number: 2023A292114

PATIENT
  Age: 25708 Day
  Sex: Female
  Weight: 71 kg

DRUGS (3)
  1. NEXIUM [Suspect]
     Active Substance: ESOMEPRAZOLE MAGNESIUM
     Indication: Chronic gastritis
     Route: 048
     Dates: start: 20231212, end: 20231220
  2. DICLOFENAC [Concomitant]
     Active Substance: DICLOFENAC
     Indication: Product used for unknown indication
  3. INFLAMED [Concomitant]
     Indication: Product used for unknown indication

REACTIONS (5)
  - Dermatitis allergic [Recovered/Resolved]
  - Urticaria [Unknown]
  - Tongue discomfort [Unknown]
  - Glossitis [Unknown]
  - Off label use [Recovered/Resolved]

NARRATIVE: CASE EVENT DATE: 20231212
